FAERS Safety Report 19042622 (Version 9)
Quarter: 2022Q2

REPORT INFORMATION
  Report Type: Spontaneous
  Country: DE (occurrence: DE)
  Receive Date: 20210323
  Receipt Date: 20220412
  Transmission Date: 20220721
  Serious: Yes (Hospitalization, Other)
  Sender: FDA-Public Use
  Company Number: NVSC2020DE318321

PATIENT
  Age: 65 Year
  Sex: Female
  Weight: 107 kg

DRUGS (15)
  1. VALSARTAN [Suspect]
     Active Substance: VALSARTAN
     Indication: Hypertension
     Dosage: 320 MG
     Route: 065
     Dates: start: 201501, end: 201504
  2. VALSARTAN [Suspect]
     Active Substance: VALSARTAN
     Dosage: 320 MG
     Route: 065
     Dates: start: 201507, end: 201512
  3. VALSARTAN [Suspect]
     Active Substance: VALSARTAN
     Indication: Hypertension
     Dosage: 240 MG, QD
     Route: 065
  4. VALSARTAN [Suspect]
     Active Substance: VALSARTAN
     Dosage: 320 MG, QD (160MG IN THE MORNING AND 160 MG IN THE EVENING)
     Route: 065
     Dates: start: 20131219
  5. VALSARTAN [Suspect]
     Active Substance: VALSARTAN
     Dosage: 1 DOSAGE FORM, BID (MORNING AND EVENING)
     Route: 065
  6. VALSARTAN [Suspect]
     Active Substance: VALSARTAN
     Dosage: 1 DOSAGE FORM, QD
     Route: 065
  7. VALSARTAN [Suspect]
     Active Substance: VALSARTAN
     Dosage: UNK
     Route: 065
     Dates: start: 2013, end: 2018
  8. VERAPAMIL [Suspect]
     Active Substance: VERAPAMIL HYDROCHLORIDE
     Indication: Product used for unknown indication
     Dosage: UNK UNK, BID, 0.5X 240 MG
     Route: 065
  9. PROVAS [Suspect]
     Active Substance: VALSARTAN
     Indication: Hypertension
     Dosage: 1 DOSAGE FORM, BID
     Route: 065
     Dates: start: 2003
  10. PROPOFOL [Concomitant]
     Active Substance: PROPOFOL
     Indication: Endoscopy upper gastrointestinal tract
     Dosage: 120 MG
     Route: 042
     Dates: start: 201709
  11. XYLOCAINE [Concomitant]
     Active Substance: LIDOCAINE HYDROCHLORIDE
     Indication: Endoscopy upper gastrointestinal tract
     Dosage: UNK, SPRAY
     Route: 065
     Dates: start: 201709
  12. XYLOCAINE [Concomitant]
     Active Substance: LIDOCAINE HYDROCHLORIDE
     Dosage: UNK
     Route: 065
     Dates: start: 202010
  13. IBUPROFEN [Concomitant]
     Active Substance: IBUPROFEN
     Indication: Product used for unknown indication
     Dosage: UNK
     Route: 065
  14. DORMICUM [Concomitant]
     Indication: Endoscopy upper gastrointestinal tract
     Dosage: 3 MG
     Route: 042
     Dates: start: 202010
  15. AMLODIPINE [Concomitant]
     Active Substance: AMLODIPINE BESYLATE
     Indication: Product used for unknown indication
     Dosage: UNK, BID,1X 5 MG
     Route: 065

REACTIONS (30)
  - Complication associated with device [Recovered/Resolved]
  - Helicobacter gastritis [Unknown]
  - Abdominal discomfort [Unknown]
  - Gastric mucosa erythema [Unknown]
  - Osteochondrosis [Unknown]
  - Basal cell carcinoma [Unknown]
  - Spondylitis [Unknown]
  - Lordosis [Unknown]
  - Arthropathy [Unknown]
  - Limb discomfort [Unknown]
  - Emotional distress [Unknown]
  - Quality of life decreased [Unknown]
  - Anxiety [Unknown]
  - Pain in extremity [Unknown]
  - Chills [Unknown]
  - Microcytic anaemia [Unknown]
  - Renal cyst [Unknown]
  - Pyrexia [Unknown]
  - Vomiting [Unknown]
  - Body fat disorder [Unknown]
  - Iron deficiency [Unknown]
  - Anaemia vitamin B12 deficiency [Unknown]
  - Hiatus hernia [Unknown]
  - Diverticulum [Unknown]
  - Insomnia [Unknown]
  - Merycism [Unknown]
  - Back pain [Unknown]
  - Myalgia [Unknown]
  - Headache [Unknown]
  - Product contamination [Unknown]

NARRATIVE: CASE EVENT DATE: 20170919
